FAERS Safety Report 24245287 (Version 1)
Quarter: 2024Q3

REPORT INFORMATION
  Report Type: Spontaneous
  Country: ZA (occurrence: None)
  Receive Date: 20240824
  Receipt Date: 20240824
  Transmission Date: 20241017
  Serious: Yes (Other)
  Sender: ASTRAZENECA
  Company Number: 2024A187824

PATIENT
  Age: 59 Year
  Sex: Male

DRUGS (5)
  1. DAPAGLIFLOZIN PROPANEDIOL [Suspect]
     Active Substance: DAPAGLIFLOZIN PROPANEDIOL
     Indication: Diabetes mellitus
     Dosage: 10.0MG UNKNOWN
     Route: 048
  2. LIPOGEN [Concomitant]
     Indication: Blood cholesterol
     Dosage: 20.0MG UNKNOWN
     Route: 048
  3. VALPROIC ACID [Concomitant]
     Active Substance: VALPROIC ACID
     Indication: Epilepsy
     Dosage: 200.0MG UNKNOWN
     Route: 048
  4. OPTISULIN CARTRIDGE [Concomitant]
     Indication: Diabetes mellitus
     Dosage: 100.0IU UNKNOWN
     Route: 058
  5. EPILIM SUGAR FREE [Concomitant]
     Indication: Epilepsy
     Dosage: 200.0MG UNKNOWN
     Route: 048

REACTIONS (1)
  - Cerebrovascular accident [Unknown]
